FAERS Safety Report 8078591-1 (Version None)
Quarter: 2012Q1

REPORT INFORMATION
  Report Type: 
  Country: None (occurrence: None)
  Receive Date: 20120124
  Receipt Date: 20120110
  Transmission Date: 20120608
  Serious: Yes (Hospitalization)
  Sender: FDA-Public Use
  Company Number: KR-007512

PATIENT
  Age: 72 Year
  Sex: Male

DRUGS (1)
  1. MINIRIN [Suspect]
     Indication: NOCTURIA
     Dosage: 0.1 MG, QD, ORAL
     Route: 048

REACTIONS (1)
  - ARRHYTHMIA [None]
